FAERS Safety Report 9520409 (Version 3)
Quarter: 2013Q4

REPORT INFORMATION
  Report Type: Report from Study
  Country: DE (occurrence: DE)
  Receive Date: 20130912
  Receipt Date: 20131002
  Transmission Date: 20140711
  Serious: No
  Sender: FDA-Public Use
  Company Number: DE-US-EMD SERONO, INC.-7205625

PATIENT
  Sex: Female

DRUGS (4)
  1. REBIF [Suspect]
     Indication: RELAPSING-REMITTING MULTIPLE SCLEROSIS
     Route: 058
  2. REBIF [Suspect]
     Route: 058
     Dates: start: 2007, end: 2012
  3. REBIF [Suspect]
     Route: 058
     Dates: start: 2012, end: 20130328
  4. THYRONAJOD [Concomitant]
     Indication: HYPOTHYROIDISM

REACTIONS (5)
  - Hypotonia [Recovered/Resolved]
  - Exercise tolerance decreased [Recovered/Resolved]
  - General physical health deterioration [Recovered/Resolved]
  - Leukopenia [Recovered/Resolved]
  - Hypochromic anaemia [Recovered/Resolved]
